FAERS Safety Report 11339594 (Version 2)
Quarter: 2015Q4

REPORT INFORMATION
  Report Type: Spontaneous
  Country: FI (occurrence: FI)
  Receive Date: 20150805
  Receipt Date: 20151014
  Transmission Date: 20160304
  Serious: Yes (Hospitalization, Other)
  Sender: FDA-Public Use
  Company Number: FI-ABBVIE-15K-055-1438447-00

PATIENT
  Sex: Female

DRUGS (1)
  1. HUMIRA [Suspect]
     Active Substance: ADALIMUMAB
     Indication: CROHN^S DISEASE
     Route: 065
     Dates: start: 201307, end: 20150728

REACTIONS (9)
  - Injection site haemorrhage [Unknown]
  - Emotional distress [Unknown]
  - Incorrect dose administered [Unknown]
  - Bladder transitional cell carcinoma stage I [Recovered/Resolved]
  - Malaise [Unknown]
  - Crohn^s disease [Unknown]
  - Device issue [Unknown]
  - Drug ineffective [Unknown]
  - Injection site bruising [Unknown]

NARRATIVE: CASE EVENT DATE: 2015
